FAERS Safety Report 24221424 (Version 1)
Quarter: 2024Q3

REPORT INFORMATION
  Report Type: Spontaneous
  Country: FR (occurrence: FR)
  Receive Date: 20240819
  Receipt Date: 20240819
  Transmission Date: 20241017
  Serious: Yes (Life-Threatening, Hospitalization)
  Sender: CHEPLAPHARM
  Company Number: None

PATIENT
  Age: 61 Year
  Sex: Female
  Weight: 65 kg

DRUGS (6)
  1. OLANZAPINE [Suspect]
     Active Substance: OLANZAPINE
     Indication: Hallucination
     Dosage: 10 MG : 1-0-2, BID?DAILY DOSE: 30 MILLIGRAM
     Route: 048
     Dates: end: 20240724
  2. LAMOTRIGINE [Suspect]
     Active Substance: LAMOTRIGINE
     Indication: Epilepsy
     Dosage: 100 MG : 2-0-3, BID?DAILY DOSE: 500 MILLIGRAM
     Route: 048
     Dates: end: 20240724
  3. TRILEPTAL [Suspect]
     Active Substance: OXCARBAZEPINE
     Indication: Epilepsy
     Dosage: 1-0-2, BID?DAILY DOSE: 900 MILLIGRAM
     Route: 048
     Dates: end: 20240724
  4. TRAZODONE HYDROCHLORIDE [Suspect]
     Active Substance: TRAZODONE HYDROCHLORIDE
     Indication: Depression
     Dosage: 0-0-1?DAILY DOSE: 50 MILLIGRAM
     Route: 048
     Dates: end: 20240724
  5. PANTOPRAZOLE [Concomitant]
     Active Substance: PANTOPRAZOLE
     Dosage: DAILY DOSE: 20 MILLIGRAM
  6. COVERAM [Concomitant]
     Active Substance: AMLODIPINE\PERINDOPRIL
     Dosage: DAILY DOSE: 1 DOSAGE FORM

REACTIONS (3)
  - Cardio-respiratory arrest [Recovered/Resolved]
  - Acute kidney injury [Recovering/Resolving]
  - Hypokalaemia [Recovered/Resolved]

NARRATIVE: CASE EVENT DATE: 20240723
